FAERS Safety Report 15117280 (Version 1)
Quarter: 2018Q3

REPORT INFORMATION
  Report Type: Spontaneous
  Country: JP (occurrence: JP)
  Receive Date: 20180706
  Receipt Date: 20180706
  Transmission Date: 20181010
  Serious: Yes (Other)
  Sender: FDA-Public Use
  Company Number: JP-PFIZER INC-2018242310

PATIENT
  Age: 69 Year
  Sex: Male
  Weight: 89.7 kg

DRUGS (2)
  1. METHOTREXATE SODIUM. [Suspect]
     Active Substance: METHOTREXATE SODIUM
     Indication: RHEUMATOID ARTHRITIS
     Dosage: 6 MG, WEEKLY
     Route: 048
     Dates: start: 20160624, end: 20170608
  2. FK (CALCIUM CARBONATE\HERBALS\SODIUM BICARBONATE) [Suspect]
     Active Substance: CALCIUM CARBONATE\HERBALS\SODIUM BICARBONATE

REACTIONS (6)
  - Osmotic demyelination syndrome [Unknown]
  - Chronic kidney disease [Recovered/Resolved]
  - Pyrexia [Unknown]
  - Arthritis [Unknown]
  - Hypertension [Unknown]
  - Anxiety [Recovering/Resolving]

NARRATIVE: CASE EVENT DATE: 2017
